FAERS Safety Report 4902018-9 (Version None)
Quarter: 2006Q1

REPORT INFORMATION
  Report Type: 
  Country: None (occurrence: None)
  Receive Date: 20060201
  Receipt Date: 20060201
  Transmission Date: 20060701
  Serious: Yes (Other)
  Sender: FDA-Public Use
  Company Number: None

PATIENT
  Age: 68 Year
  Sex: Male
  Weight: 88.1 kg

DRUGS (1)
  1. RITUXIMAB [Suspect]

REACTIONS (3)
  - CHILLS [None]
  - DYSPNOEA [None]
  - PYREXIA [None]
